FAERS Safety Report 8299109-4 (Version None)
Quarter: 2012Q2

REPORT INFORMATION
  Report Type: 
  Country: None (occurrence: None)
  Receive Date: 20120419
  Receipt Date: 20120406
  Transmission Date: 20120825
  Serious: Yes (Other)
  Sender: FDA-Public Use
  Company Number: PHHY2012NL029620

PATIENT
  Age: 55 Year
  Sex: Male

DRUGS (1)
  1. TOBI [Suspect]
     Indication: RESPIRATORY TRACT INFECTION

REACTIONS (2)
  - RENAL IMPAIRMENT [None]
  - DRUG LEVEL INCREASED [None]
